FAERS Safety Report 5390116-8 (Version None)
Quarter: 2007Q3

REPORT INFORMATION
  Report Type: 
  Country: None (occurrence: None)
  Receive Date: 20070718
  Receipt Date: 20070716
  Transmission Date: 20080115
  Serious: Yes (Other)
  Sender: FDA-Public Use
  Company Number: B0479042A

PATIENT
  Sex: Male

DRUGS (3)
  1. CEFUROXIME [Suspect]
     Indication: LARYNGITIS
     Dosage: 250MG TWICE PER DAY
     Route: 065
     Dates: start: 20070529, end: 20070531
  2. ASPIRIN [Suspect]
     Indication: DRUG USE FOR UNKNOWN INDICATION
     Route: 065
  3. CARDIOVASCULAR DRUGS (UNSPECIFIED) [Concomitant]

REACTIONS (2)
  - ANAPHYLACTIC REACTION [None]
  - SWELLING FACE [None]
